FAERS Safety Report 13548789 (Version 13)
Quarter: 2020Q2

REPORT INFORMATION
  Report Type: Report from Study
  Country: JP (occurrence: JP)
  Receive Date: 20170516
  Receipt Date: 20200630
  Transmission Date: 20200713
  Serious: Yes (Life-Threatening, Hospitalization, Other)
  Sender: FDA-Public Use
  Company Number: JP-BRISTOL-MYERS SQUIBB COMPANY-BMS-2017-034870

PATIENT
  Age: 66 Year
  Sex: Female
  Weight: 65 kg

DRUGS (1)
  1. NIVOLUMAB [Suspect]
     Active Substance: NIVOLUMAB
     Indication: MALIGNANT MELANOMA
     Dosage: 2 MILLIGRAM/KILOGRAM
     Route: 041
     Dates: start: 20160923, end: 20170327

REACTIONS (3)
  - Toxic epidermal necrolysis [Recovered/Resolved]
  - Autoimmune thyroiditis [Not Recovered/Not Resolved]
  - Type 1 diabetes mellitus [Not Recovered/Not Resolved]

NARRATIVE: CASE EVENT DATE: 20170410
